FAERS Safety Report 7276225-7 (Version None)
Quarter: 2011Q1

REPORT INFORMATION
  Report Type: 
  Country: None (occurrence: None)
  Receive Date: 20110204
  Receipt Date: 20110131
  Transmission Date: 20110831
  Serious: Yes (Death, Hospitalization, Other)
  Sender: FDA-Public Use
  Company Number: PHHY2011BR08145

PATIENT
  Sex: Female

DRUGS (3)
  1. LIPITOR [Concomitant]
     Indication: BLOOD CHOLESTEROL
     Dosage: 40 MG (1 TABLET PER DAY)
  2. DIOVAN [Suspect]
     Indication: HYPERTENSION
     Dosage: 320 MG (1 TABLET PER DAY)
     Route: 048
  3. AAS [Concomitant]
     Indication: BLOOD DISORDER
     Dosage: 1 DF, UNK

REACTIONS (8)
  - PNEUMONIA [None]
  - HAEMORRHAGE [None]
  - BENIGN NEOPLASM [None]
  - RESPIRATORY FAILURE [None]
  - WOUND [None]
  - CEREBROVASCULAR ACCIDENT [None]
  - INFARCTION [None]
  - HYPOAESTHESIA [None]
